FAERS Safety Report 13912336 (Version 1)
Quarter: 2017Q3

REPORT INFORMATION
  Report Type: Spontaneous
  Country: US (occurrence: US)
  Receive Date: 20170828
  Receipt Date: 20170828
  Transmission Date: 20171127
  Serious: No
  Sender: FDA-Public Use
  Company Number: US-ROCHE-GNE311408

PATIENT
  Age: 8 Year
  Sex: Male

DRUGS (3)
  1. SOMATROPIN. [Suspect]
     Active Substance: SOMATROPIN
     Indication: GROWTH HORMONE DEFICIENCY
     Route: 065
  2. NUTROPIN AQ [Suspect]
     Active Substance: SOMATROPIN
     Indication: GROWTH HORMONE DEFICIENCY
     Dosage: 0.8 MG, QD
     Route: 058
     Dates: start: 20100525
  3. NUTROPIN AQ [Suspect]
     Active Substance: SOMATROPIN
     Dosage: UNK
     Route: 065
     Dates: start: 20101205, end: 20101212

REACTIONS (1)
  - Pain [Recovered/Resolved]

NARRATIVE: CASE EVENT DATE: 20101205
